FAERS Safety Report 4678369-2 (Version None)
Quarter: 2005Q2

REPORT INFORMATION
  Report Type: 
  Country: None (occurrence: None)
  Receive Date: 20050601
  Receipt Date: 20050302
  Transmission Date: 20051028
  Serious: Yes (Other)
  Sender: FDA-Public Use
  Company Number: PHNR2005AU00608

PATIENT
  Age: 68 Year
  Sex: Male

DRUGS (2)
  1. ZOMETA [Suspect]
     Indication: MULTIPLE MYELOMA
     Dosage: 4 MG, UNK
  2. PREDNISONE TAB [Concomitant]
     Indication: MULTIPLE MYELOMA
     Dosage: 50 MG

REACTIONS (4)
  - BONE DISORDER [None]
  - DENTAL TREATMENT [None]
  - IMPAIRED HEALING [None]
  - OSTEONECROSIS [None]
